FAERS Safety Report 17370019 (Version 1)
Quarter: 2020Q1

REPORT INFORMATION
  Report Type: Spontaneous
  Country: FR (occurrence: FR)
  Receive Date: 20200205
  Receipt Date: 20200205
  Transmission Date: 20200409
  Serious: Yes (Life-Threatening)
  Sender: FDA-Public Use
  Company Number: FR-TEVA-2020-FR-1181034

PATIENT
  Age: 53 Year
  Sex: Female

DRUGS (4)
  1. SURGAM [Suspect]
     Active Substance: TIAPROFENIC ACID
     Indication: TONSILLITIS
     Route: 048
     Dates: start: 20170202, end: 20170205
  2. NASACORT [Concomitant]
     Active Substance: TRIAMCINOLONE ACETONIDE
     Route: 045
     Dates: start: 20170202, end: 20170205
  3. AMOXICILLINE [Suspect]
     Active Substance: AMOXICILLIN
     Indication: TONSILLITIS
     Route: 048
     Dates: start: 20170202, end: 20170205
  4. TUSSIDANE 1,5 MG/ML, SIROP [Suspect]
     Active Substance: DEXTROMETHORPHAN HYDROBROMIDE
     Indication: COUGH
     Route: 048
     Dates: start: 20170202, end: 20170205

REACTIONS (2)
  - Acute generalised exanthematous pustulosis [Recovered/Resolved]
  - Hypersensitivity [Recovered/Resolved]

NARRATIVE: CASE EVENT DATE: 20170203
